FAERS Safety Report 7352258-7 (Version None)
Quarter: 2011Q1

REPORT INFORMATION
  Report Type: 
  Country: None (occurrence: None)
  Receive Date: 20110304
  Receipt Date: 20110221
  Transmission Date: 20110831
  Serious: Yes (Hospitalization)
  Sender: FDA-Public Use
  Company Number: 027951

PATIENT
  Age: 67 Year
  Sex: Female

DRUGS (1)
  1. CIMZIA [Suspect]
     Indication: RHEUMATOID ARTHRITIS
     Dosage: (400 MG 1X/MONTH SUBCUTANEOUS)
     Route: 058

REACTIONS (6)
  - ORAL HERPES [None]
  - LOSS OF CONSCIOUSNESS [None]
  - MIGRAINE [None]
  - RHINORRHOEA [None]
  - COUGH [None]
  - TRANSIENT ISCHAEMIC ATTACK [None]
